FAERS Safety Report 12779470 (Version 17)
Quarter: 2019Q1

REPORT INFORMATION
  Report Type: Report from Study
  Country: CA (occurrence: CA)
  Receive Date: 20160926
  Receipt Date: 20190328
  Transmission Date: 20190417
  Serious: Yes (Hospitalization)
  Sender: FDA-Public Use
  Company Number: PHHY2015CA142747

PATIENT
  Age: 40 Year
  Sex: Male

DRUGS (11)
  1. COSENTYX [Suspect]
     Active Substance: SECUKINUMAB
     Dosage: 300 MG, QMO (SENSOREADY PEN
     Route: 058
     Dates: start: 20180523
  2. CYCLOSPORINE. [Concomitant]
     Active Substance: CYCLOSPORINE
     Indication: PRODUCT USED FOR UNKNOWN INDICATION
     Route: 065
  3. CALCIPOTRIENE AND BETAMETHASONE DIPROPIONATE [Concomitant]
     Active Substance: BETAMETHASONE DIPROPIONATE\CALCIPOTRIENE
     Indication: PRODUCT USED FOR UNKNOWN INDICATION
     Route: 065
  4. COSENTYX [Suspect]
     Active Substance: SECUKINUMAB
     Dosage: 300 MG, QMO
     Route: 058
     Dates: end: 2017
  5. COSENTYX [Suspect]
     Active Substance: SECUKINUMAB
     Dosage: 300 MG, QMO
     Route: 058
     Dates: start: 2017
  6. METHOTREXATE. [Concomitant]
     Active Substance: METHOTREXATE
     Indication: PRODUCT USED FOR UNKNOWN INDICATION
     Route: 065
  7. COSENTYX [Suspect]
     Active Substance: SECUKINUMAB
     Dosage: 300 MG, QMO
     Route: 058
     Dates: start: 20151031
  8. COSENTYX [Suspect]
     Active Substance: SECUKINUMAB
     Dosage: 300 MG, QMO
     Route: 058
     Dates: end: 20160829
  9. STELARA [Concomitant]
     Active Substance: USTEKINUMAB
     Indication: PRODUCT USED FOR UNKNOWN INDICATION
     Route: 065
  10. COSENTYX [Suspect]
     Active Substance: SECUKINUMAB
     Indication: PSORIASIS
     Dosage: 300 MG, QMO
     Route: 058
     Dates: start: 20151003, end: 20151024
  11. COSENTYX [Suspect]
     Active Substance: SECUKINUMAB
     Dosage: 300 MG, QW
     Route: 058
     Dates: start: 20170524, end: 2017

REACTIONS (25)
  - Subcutaneous abscess [Unknown]
  - Skin infection [Unknown]
  - Rash [Unknown]
  - Drug effect decreased [Unknown]
  - Limb discomfort [Recovering/Resolving]
  - Back pain [Unknown]
  - Musculoskeletal pain [Unknown]
  - Post procedural complication [Unknown]
  - Pain [Unknown]
  - Psoriasis [Unknown]
  - White blood cell count increased [Unknown]
  - Asthenia [Recovering/Resolving]
  - Secretion discharge [Unknown]
  - Muscle tightness [Unknown]
  - Urinary incontinence [Unknown]
  - Infection [Unknown]
  - Peripheral swelling [Unknown]
  - Pain in extremity [Recovering/Resolving]
  - Inflammation [Unknown]
  - Injection site inflammation [Unknown]
  - Inappropriate schedule of product administration [Unknown]
  - Anal abscess [Unknown]
  - Abscess [Unknown]
  - Wound [Unknown]
  - Fistula [Unknown]

NARRATIVE: CASE EVENT DATE: 201510
